FAERS Safety Report 13563093 (Version 6)
Quarter: 2017Q4

REPORT INFORMATION
  Report Type: Spontaneous
  Country: DE (occurrence: DE)
  Receive Date: 20170519
  Receipt Date: 20171020
  Transmission Date: 20180320
  Serious: Yes (Death)
  Sender: FDA-Public Use
  Company Number: PHHY2017DE072910

PATIENT
  Age: 79 Year
  Sex: Male
  Weight: 73 kg

DRUGS (8)
  1. AMIODARONE [Suspect]
     Active Substance: AMIODARONE
     Indication: PRODUCT USED FOR UNKNOWN INDICATION
     Dosage: 1 DF (200 MG), QD
     Route: 048
  2. SPIRONOLACTON [Suspect]
     Active Substance: SPIRONOLACTONE
     Indication: PRODUCT USED FOR UNKNOWN INDICATION
     Dosage: 1 DF (25 MG), QD
     Route: 048
     Dates: start: 201602
  3. L-THYROXINE [Suspect]
     Active Substance: LEVOTHYROXINE
     Indication: PRODUCT USED FOR UNKNOWN INDICATION
     Route: 065
  4. ALLOPURINOL. [Suspect]
     Active Substance: ALLOPURINOL
     Indication: PRODUCT USED FOR UNKNOWN INDICATION
     Route: 065
  5. ENTRESTO [Suspect]
     Active Substance: SACUBITRIL\VALSARTAN
     Indication: CARDIAC FAILURE CHRONIC
     Dosage: 1 DF, BID
     Route: 048
     Dates: start: 20160518, end: 201609
  6. TORASEMIDE [Concomitant]
     Active Substance: TORSEMIDE
     Indication: PRODUCT USED FOR UNKNOWN INDICATION
     Route: 065
  7. MARCUMAR [Suspect]
     Active Substance: PHENPROCOUMON
     Indication: PRODUCT USED FOR UNKNOWN INDICATION
     Route: 065
  8. BISOPROLOL [Suspect]
     Active Substance: BISOPROLOL
     Indication: PRODUCT USED FOR UNKNOWN INDICATION
     Dosage: 1 DF (10 MG), QD
     Route: 048

REACTIONS (2)
  - Completed suicide [Fatal]
  - Hypotension [Unknown]

NARRATIVE: CASE EVENT DATE: 2016
